FAERS Safety Report 13359320 (Version 1)
Quarter: 2017Q1

REPORT INFORMATION
  Report Type: Spontaneous
  Country: US (occurrence: US)
  Receive Date: 20170321
  Receipt Date: 20170321
  Transmission Date: 20170429
  Serious: Yes (Hospitalization)
  Sender: FDA-Public Use
  Company Number: None

PATIENT
  Age: 73 Year
  Sex: Male
  Weight: 86.4 kg

DRUGS (6)
  1. LENALIDOMIDE (CC-5013) [Suspect]
     Active Substance: LENALIDOMIDE
     Dates: end: 20170210
  2. RITUXIMAB (MOAB C2B8 ANTI CD20, CHIMERIC) [Suspect]
     Active Substance: RITUXIMAB
     Dates: end: 20170316
  3. LORAZEPAM. [Concomitant]
     Active Substance: LORAZEPAM
  4. OMEPRAZOLE. [Concomitant]
     Active Substance: OMEPRAZOLE
  5. LOVASTATIN. [Concomitant]
     Active Substance: LOVASTATIN
  6. LSINOPRIL-HYDROCHLOROTHIAZIDE [Concomitant]

REACTIONS (6)
  - Dyspnoea [None]
  - Productive cough [None]
  - Pneumonia [None]
  - Pyrexia [None]
  - Pleuritic pain [None]
  - Influenza [None]

NARRATIVE: CASE EVENT DATE: 20170318
